FAERS Safety Report 15371734 (Version 1)
Quarter: 2018Q3

REPORT INFORMATION
  Report Type: Spontaneous
  Country: FR (occurrence: FR)
  Receive Date: 20180911
  Receipt Date: 20180911
  Transmission Date: 20181010
  Serious: Yes (Other)
  Sender: FDA-Public Use
  Company Number: FR-ELI_LILLY_AND_COMPANY-FR201301008879

PATIENT
  Age: 69 Year
  Sex: Male

DRUGS (7)
  1. GEMZAR [Suspect]
     Active Substance: GEMCITABINE HYDROCHLORIDE
     Indication: BLADDER CANCER
     Dosage: 1634 MG, UNKNOWN
     Route: 042
     Dates: start: 20121107, end: 20130102
  2. PRAVASTATIN. [Concomitant]
     Active Substance: PRAVASTATIN
  3. CARBOPLATIN. [Suspect]
     Active Substance: CARBOPLATIN
     Indication: BLADDER CANCER
     Dosage: 350 MG, UNKNOWN
     Route: 042
     Dates: start: 20121107, end: 20130102
  4. ZOPHREN                            /00955301/ [Suspect]
     Active Substance: ONDANSETRON
     Indication: PRODUCT USED FOR UNKNOWN INDICATION
     Dosage: UNK
     Route: 024
     Dates: start: 20121107, end: 20130102
  5. KARDEGIC [Concomitant]
     Active Substance: ASPIRIN DL-LYSINE
  6. SOTALOL. [Concomitant]
     Active Substance: SOTALOL
  7. TAREG [Concomitant]
     Active Substance: VALSARTAN

REACTIONS (2)
  - Amaurosis [Recovered/Resolved with Sequelae]
  - Transient ischaemic attack [Recovered/Resolved with Sequelae]

NARRATIVE: CASE EVENT DATE: 20130107
